FAERS Safety Report 4930560-3 (Version None)
Quarter: 2006Q1

REPORT INFORMATION
  Report Type: 
  Country: None (occurrence: None)
  Receive Date: 20060302
  Receipt Date: 20060224
  Transmission Date: 20060701
  Serious: Yes (Hospitalization)
  Sender: FDA-Public Use
  Company Number: US-MERCK-0602USA05534

PATIENT
  Age: 72 Year
  Sex: Female

DRUGS (15)
  1. FOSAMAX [Suspect]
     Indication: OSTEOPOROSIS PROPHYLAXIS
     Route: 048
     Dates: start: 19950101
  2. VASOTEC RPD [Concomitant]
     Route: 048
  3. CATAPRES [Concomitant]
     Route: 065
  4. DIAZEPAM [Concomitant]
     Route: 065
  5. NEXIUM [Concomitant]
     Route: 065
  6. ACTOS [Concomitant]
     Route: 065
  7. EDECRIN [Concomitant]
     Route: 048
  8. LIPITOR [Concomitant]
     Route: 065
  9. ZETIA [Concomitant]
     Route: 048
  10. MICRONASE [Concomitant]
     Route: 065
  11. COUMADIN [Concomitant]
     Route: 065
  12. AGGRENOX [Concomitant]
     Route: 065
  13. FOLIC ACID [Concomitant]
     Route: 065
  14. PLENDIL [Concomitant]
     Route: 048
  15. LEVSIN [Concomitant]
     Route: 065

REACTIONS (2)
  - FALL [None]
  - HIP FRACTURE [None]
